FAERS Safety Report 15715555 (Version 1)
Quarter: 2018Q4

REPORT INFORMATION
  Report Type: Spontaneous
  Country: US (occurrence: US)
  Receive Date: 20181212
  Receipt Date: 20181212
  Transmission Date: 20190205
  Serious: No
  Sender: FDA-Public Use
  Company Number: US-BAUSCH-BL-2018-033774

PATIENT
  Sex: Male

DRUGS (1)
  1. LUMIFY [Suspect]
     Active Substance: BRIMONIDINE TARTRATE
     Indication: PRODUCT USED FOR UNKNOWN INDICATION
     Route: 065
     Dates: start: 20181129

REACTIONS (3)
  - Asthenopia [Recovered/Resolved]
  - Pain [Recovered/Resolved]
  - Dry eye [Recovered/Resolved]

NARRATIVE: CASE EVENT DATE: 20181129
